FAERS Safety Report 7750481-0 (Version None)
Quarter: 2011Q3

REPORT INFORMATION
  Report Type: 
  Country: None (occurrence: None)
  Receive Date: 20110912
  Receipt Date: 20110908
  Transmission Date: 20111222
  Serious: Yes (Death)
  Sender: FDA-Public Use
  Company Number: 201110824

PATIENT
  Sex: Male

DRUGS (1)
  1. LIORESAL [Suspect]
     Indication: MUSCLE SPASTICITY
     Dosage: 320 MCG, DAILY, INTRATHECAL
     Route: 037

REACTIONS (3)
  - SEPSIS [None]
  - DISEASE COMPLICATION [None]
  - RENAL ABSCESS [None]
